FAERS Safety Report 8330351-X (Version None)
Quarter: 2012Q2

REPORT INFORMATION
  Report Type: 
  Country: None (occurrence: None)
  Receive Date: 20120502
  Receipt Date: 20120501
  Transmission Date: 20120825
  Serious: No
  Sender: FDA-Public Use
  Company Number: US-PFIZER INC-2012106827

PATIENT
  Sex: Female
  Weight: 54.422 kg

DRUGS (4)
  1. LYRICA [Suspect]
     Indication: PERIPHERAL NERVE LESION
  2. LYRICA [Suspect]
     Indication: PAIN IN EXTREMITY
  3. LYRICA [Suspect]
     Indication: ARTHRALGIA
     Dosage: 75 MG, DAILY
     Route: 048
     Dates: start: 20120409, end: 20120409
  4. LYRICA [Suspect]
     Indication: GROIN PAIN

REACTIONS (1)
  - SOMNOLENCE [None]
